FAERS Safety Report 13121762 (Version 1)
Quarter: 2017Q1

REPORT INFORMATION
  Report Type: Spontaneous
  Country: US (occurrence: US)
  Receive Date: 20170115
  Receipt Date: 20170115
  Transmission Date: 20170428
  Serious: No
  Sender: FDA-Public Use
  Company Number: None

PATIENT
  Age: 45 Year
  Sex: Male
  Weight: 85.5 kg

DRUGS (6)
  1. MELATONIN [Concomitant]
     Active Substance: MELATONIN
  2. SERTRALINE [Concomitant]
     Active Substance: SERTRALINE HYDROCHLORIDE
  3. OXCARBAZEPINE. [Suspect]
     Active Substance: OXCARBAZEPINE
     Indication: TRIGEMINAL NEURALGIA
     Dosage: ?          QUANTITY:4 CAPSULE(S);?
     Route: 048
     Dates: start: 20170114, end: 20170115
  4. ALEVE [Concomitant]
     Active Substance: NAPROXEN SODIUM
  5. DAILY MEN^S MULTIVITAMIN [Concomitant]
  6. IBUPROFEN. [Concomitant]
     Active Substance: IBUPROFEN

REACTIONS (8)
  - Lip swelling [None]
  - Rash [None]
  - Swollen tongue [None]
  - Chills [None]
  - Circumoral oedema [None]
  - Oropharyngeal pain [None]
  - Blister [None]
  - Dizziness [None]

NARRATIVE: CASE EVENT DATE: 20170115
